FAERS Safety Report 8443662-4 (Version None)
Quarter: 2012Q2

REPORT INFORMATION
  Report Type: 
  Country: None (occurrence: None)
  Receive Date: 20120618
  Receipt Date: 20120608
  Transmission Date: 20120825
  Serious: Yes (Hospitalization, Other)
  Sender: FDA-Public Use
  Company Number: CA-JNJFOC-20120207157

PATIENT
  Sex: Female

DRUGS (4)
  1. RISPERDAL [Suspect]
     Indication: PRODUCT USED FOR UNKNOWN INDICATION
     Route: 065
     Dates: end: 20111201
  2. RANITIDINE [Concomitant]
     Indication: GASTRIC DISORDER
     Route: 065
  3. ESCITALOPRAM [Concomitant]
     Route: 065
  4. DOMPERIDONE [Concomitant]
     Route: 065

REACTIONS (1)
  - PULMONARY EMBOLISM [None]
